FAERS Safety Report 25627541 (Version 1)
Quarter: 2025Q3

REPORT INFORMATION
  Report Type: Spontaneous
  Country: US (occurrence: None)
  Receive Date: 20250731
  Receipt Date: 20250731
  Transmission Date: 20251020
  Serious: No
  Sender: FDA-CTU
  Company Number: None

PATIENT
  Age: 79 Year
  Sex: Female

DRUGS (3)
  1. ENBREL [Suspect]
     Active Substance: ETANERCEPT
     Indication: Rheumatoid arthritis
     Dosage: INJECT 50MG SUBCUTANEOUSLY ONCE WEEKLY AS DIRECTED
     Route: 058
     Dates: start: 202501
  2. ENBREL [Suspect]
     Active Substance: ETANERCEPT
     Indication: Polyarthritis
  3. ENBREL [Suspect]
     Active Substance: ETANERCEPT
     Indication: Multi-organ disorder

REACTIONS (1)
  - Retinal operation [None]
